FAERS Safety Report 4520972-4 (Version None)
Quarter: 2004Q4

REPORT INFORMATION
  Report Type: 
  Country: None (occurrence: None)
  Receive Date: 20041206
  Receipt Date: 20041126
  Transmission Date: 20050328
  Serious: Yes (Life-Threatening, Hospitalization)
  Sender: FDA-Public Use
  Company Number: 2004-11-0890

PATIENT
  Age: 70 Year
  Sex: Female

DRUGS (7)
  1. EPREX [Suspect]
     Indication: ANAEMIA
     Dosage: 40000 U QW SUBCUTANEOUS
     Route: 058
     Dates: start: 20041013, end: 20041101
  2. TEMODAL [Suspect]
     Indication: GLIOBLASTOMA MULTIFORME
     Dosage: 75 MG/M^2/DAY ORAL
     Route: 048
     Dates: start: 20041014, end: 20041101
  3. CORTICOSTEROID [Concomitant]
  4. PHENITOINE [Concomitant]
  5. RADIATION THERAPY [Concomitant]
  6. ... [Concomitant]
  7. GLIOBLASTOMA MULTIFORME [Concomitant]

REACTIONS (3)
  - ANAEMIA [None]
  - POST PROCEDURAL HAEMORRHAGE [None]
  - PULMONARY EMBOLISM [None]
